FAERS Safety Report 5466376-1 (Version None)
Quarter: 2007Q3

REPORT INFORMATION
  Report Type: 
  Country: None (occurrence: None)
  Receive Date: 20070920
  Receipt Date: 20070910
  Transmission Date: 20080115
  Serious: Yes (Other)
  Sender: FDA-Public Use
  Company Number: CHPA2007US09574

PATIENT
  Age: 46 Year
  Sex: Male
  Weight: 79.8 kg

DRUGS (3)
  1. HABITROL     (NICOTINE)       TRANS-THERAPEUTIC-SYSTEM [Suspect]
     Indication: SMOKING CESSATION THERAPY
     Dosage: TWO 21 MG PATCHES DAILY DURING DAYTIME, TRANSDERMAL, 2 PATCHES DAILY DURING DAYTIME, TRANSDERMAL
     Route: 062
     Dates: start: 20070801
  2. HABITROL     (NICOTINE)       TRANS-THERAPEUTIC-SYSTEM [Suspect]
     Indication: SMOKING CESSATION THERAPY
     Dosage: TWO 21 MG PATCHES DAILY DURING DAYTIME, TRANSDERMAL, 2 PATCHES DAILY DURING DAYTIME, TRANSDERMAL
     Route: 062
     Dates: start: 20070827
  3. NICTOROL               (NICOTINE) [Suspect]
     Indication: SMOKING CESSATION THERAPY
     Dosage: 1 CARTRIDGE, ONCE/SINGLE A DAY, INHALATION
     Route: 055

REACTIONS (4)
  - ANOREXIA [None]
  - BLOOD PRESSURE INCREASED [None]
  - OVERDOSE [None]
  - TREATMENT NONCOMPLIANCE [None]
